FAERS Safety Report 15741609 (Version 4)
Quarter: 2021Q1

REPORT INFORMATION
  Report Type: Spontaneous
  Country: US (occurrence: US)
  Receive Date: 20181219
  Receipt Date: 20210225
  Transmission Date: 20210419
  Serious: No
  Sender: FDA-Public Use
  Company Number: US-SA-2018SA387873

PATIENT
  Age: 46 Year
  Sex: Female

DRUGS (35)
  1. DUPIXENT [Suspect]
     Active Substance: DUPILUMAB
     Indication: DERMATITIS ATOPIC
     Dosage: 600 MG, 1X
     Route: 058
     Dates: start: 20180508, end: 20180508
  2. PHENTERMINE. [Concomitant]
     Active Substance: PHENTERMINE
  3. LATUDA [Concomitant]
     Active Substance: LURASIDONE HYDROCHLORIDE
  4. NEOMYCIN AND POLYMYXIN B SULFATES AND HYDROCORTISONE [Concomitant]
     Active Substance: HYDROCORTISONE\NEOMYCIN SULFATE\POLYMYXIN B SULFATE
  5. ATORVASTATIN CALCIUM. [Concomitant]
     Active Substance: ATORVASTATIN CALCIUM
  6. METFORMIN HCL [Concomitant]
     Active Substance: METFORMIN HYDROCHLORIDE
  7. METFORMIN [Concomitant]
     Active Substance: METFORMIN HYDROCHLORIDE
  8. CEFDINIR. [Concomitant]
     Active Substance: CEFDINIR
  9. ONDANSETRON [Concomitant]
     Active Substance: ONDANSETRON
  10. VITAMIN D2 [Concomitant]
     Active Substance: ERGOCALCIFEROL
  11. BUSPIRONE [Concomitant]
     Active Substance: BUSPIRONE HYDROCHLORIDE
  12. ZOLPIDEM [Concomitant]
     Active Substance: ZOLPIDEM TARTRATE
  13. TRAZODONE [Concomitant]
     Active Substance: TRAZODONE HYDROCHLORIDE
  14. SEROQUEL [Concomitant]
     Active Substance: QUETIAPINE FUMARATE
  15. ECONAZOLE. [Concomitant]
     Active Substance: ECONAZOLE NITRATE
  16. PROAIR HFA [Concomitant]
     Active Substance: ALBUTEROL SULFATE
  17. DULOXETINE. [Concomitant]
     Active Substance: DULOXETINE
  18. OFLOXACIN. [Concomitant]
     Active Substance: OFLOXACIN
  19. MONTELUKAST [Concomitant]
     Active Substance: MONTELUKAST SODIUM
  20. IPRATROPIUM BROMIDE AND ALBUTEROL SULFATE [Concomitant]
     Active Substance: ALBUTEROL SULFATE\IPRATROPIUM BROMIDE
  21. VICTOZA [Concomitant]
     Active Substance: LIRAGLUTIDE
  22. FLUTICASONE. [Concomitant]
     Active Substance: FLUTICASONE
  23. CLONAZEPAM. [Concomitant]
     Active Substance: CLONAZEPAM
  24. PREDNISONE. [Concomitant]
     Active Substance: PREDNISONE
  25. DUPIXENT [Suspect]
     Active Substance: DUPILUMAB
     Dosage: 300 MG, QOW
     Route: 058
     Dates: start: 2019, end: 202012
  26. LORATADINE. [Concomitant]
     Active Substance: LORATADINE
  27. LISINOPRIL. [Concomitant]
     Active Substance: LISINOPRIL
  28. METHYLPRED [Concomitant]
     Active Substance: METHYLPREDNISOLONE
  29. DUPIXENT [Suspect]
     Active Substance: DUPILUMAB
     Dosage: 300 MG, QOW
     Route: 058
     Dates: start: 201805, end: 20181101
  30. LITHIUM CARBONATE. [Concomitant]
     Active Substance: LITHIUM CARBONATE
  31. VENLAFAXINE [Concomitant]
     Active Substance: VENLAFAXINE HYDROCHLORIDE
  32. APAP;HYDROCODONE [Concomitant]
     Active Substance: ACETAMINOPHEN\HYDROCODONE
  33. NITROFURANTIN [Concomitant]
     Active Substance: NITROFURANTOIN
  34. DOXYCYCLINE MONOHYDRATE [Concomitant]
     Active Substance: DOXYCYCLINE
  35. DICLOFENAC [Concomitant]
     Active Substance: DICLOFENAC

REACTIONS (9)
  - Peripheral swelling [Not Recovered/Not Resolved]
  - Skin exfoliation [Not Recovered/Not Resolved]
  - Erythema [Not Recovered/Not Resolved]
  - Product dose omission issue [Unknown]
  - Dermatitis atopic [Not Recovered/Not Resolved]
  - Insomnia [Not Recovered/Not Resolved]
  - Discomfort [Not Recovered/Not Resolved]
  - Product dose omission issue [Not Recovered/Not Resolved]
  - Rash [Not Recovered/Not Resolved]

NARRATIVE: CASE EVENT DATE: 2018
